FAERS Safety Report 9486675 (Version 1)
Quarter: 2013Q3

REPORT INFORMATION
  Report Type: Spontaneous
  Country: US (occurrence: US)
  Receive Date: 20130829
  Receipt Date: 20130829
  Transmission Date: 20140515
  Serious: Yes (Other)
  Sender: FDA-Public Use
  Company Number: US-PFIZER INC-2013248826

PATIENT
  Age: 54 Year
  Sex: 0

DRUGS (2)
  1. NITROSTAT [Suspect]
     Dosage: UNK
  2. PROTONIX [Suspect]
     Dosage: UNK

REACTIONS (2)
  - Cerebrovascular accident [Unknown]
  - Activities of daily living impaired [Unknown]
